FAERS Safety Report 10776626 (Version 1)
Quarter: 2015Q1

REPORT INFORMATION
  Report Type: Spontaneous
  Country: DE (occurrence: DE)
  Receive Date: 20150209
  Receipt Date: 20150209
  Transmission Date: 20150721
  Serious: Yes (Other)
  Sender: FDA-Public Use
  Company Number: DE-BAXTER-2015BAX006837

PATIENT
  Age: 5 Year
  Sex: Female

DRUGS (14)
  1. METRONIDAZOL-INFUSIONSL?SUNG 0,5 % BAXTER [Suspect]
     Active Substance: METRONIDAZOLE
     Indication: OFF LABEL USE
  2. MEROPENEM. [Suspect]
     Active Substance: MEROPENEM
     Indication: PSEUDOMONAS TEST POSITIVE
  3. CEFOTAXIME [Suspect]
     Active Substance: CEFOTAXIME\CEFOTAXIME SODIUM
     Indication: ANTIBIOTIC THERAPY
     Route: 065
  4. METRONIDAZOL-INFUSIONSL?SUNG 0,5 % BAXTER [Suspect]
     Active Substance: METRONIDAZOLE
     Indication: BLOOD CULTURE POSITIVE
  5. VANCOMYCIN [Suspect]
     Active Substance: VANCOMYCIN
     Indication: BLOOD CULTURE POSITIVE
  6. PREDNISONE. [Concomitant]
     Active Substance: PREDNISONE
     Indication: PRODUCT USED FOR UNKNOWN INDICATION
     Route: 065
  7. METRONIDAZOL-INFUSIONSL?SUNG 0,5 % BAXTER [Suspect]
     Active Substance: METRONIDAZOLE
     Indication: PSEUDOMONAS TEST POSITIVE
  8. TOBRAMYCIN. [Suspect]
     Active Substance: TOBRAMYCIN
     Indication: ANTIBIOTIC THERAPY
     Route: 065
  9. VANCOMYCIN [Suspect]
     Active Substance: VANCOMYCIN
     Indication: ANTIBIOTIC THERAPY
     Route: 065
  10. VANCOMYCIN [Suspect]
     Active Substance: VANCOMYCIN
     Indication: CULTURE STOOL POSITIVE
     Route: 065
  11. VANCOMYCIN [Suspect]
     Active Substance: VANCOMYCIN
     Indication: PSEUDOMONAS TEST POSITIVE
  12. MEROPENEM. [Suspect]
     Active Substance: MEROPENEM
     Indication: BLOOD CULTURE POSITIVE
  13. MEROPENEM. [Suspect]
     Active Substance: MEROPENEM
     Indication: CULTURE STOOL POSITIVE
     Route: 065
  14. METRONIDAZOL-INFUSIONSL?SUNG 0,5 % BAXTER [Suspect]
     Active Substance: METRONIDAZOLE
     Indication: CULTURE STOOL POSITIVE
     Route: 042

REACTIONS (2)
  - Ileus paralytic [Unknown]
  - Herpes simplex encephalitis [Unknown]
